FAERS Safety Report 7206572-6 (Version None)
Quarter: 2011Q1

REPORT INFORMATION
  Report Type: 
  Country: None (occurrence: None)
  Receive Date: 20110103
  Receipt Date: 20101229
  Transmission Date: 20110831
  Serious: No
  Sender: FDA-Public Use
  Company Number: KR-JNJFOC-20101104853

PATIENT
  Sex: Male

DRUGS (1)
  1. DURAGESIC-100 [Suspect]
     Indication: PAIN MANAGEMENT
     Route: 062

REACTIONS (4)
  - DIZZINESS [None]
  - DYSURIA [None]
  - TREATMENT NONCOMPLIANCE [None]
  - ERECTILE DYSFUNCTION [None]
